FAERS Safety Report 23461233 (Version 1)
Quarter: 2024Q1

REPORT INFORMATION
  Report Type: Other
  Country: None (occurrence: US)
  Receive Date: 20240131
  Receipt Date: 20240131
  Transmission Date: 20240410
  Serious: Yes (Life-Threatening)
  Sender: FDA-Public Use
  Company Number: US-B.Braun Medical Inc.-2152380

PATIENT
  Age: 59 Year
  Sex: Female

DRUGS (1)
  1. BUPIVACAINE HYDROCHLORIDE WITH DEXTROSE [Suspect]
     Active Substance: BUPIVACAINE HYDROCHLORIDE
     Indication: Myofascial pain syndrome

REACTIONS (4)
  - Cardiac failure acute [None]
  - Left ventricular dysfunction [None]
  - Acute myocardial infarction [None]
  - Off label use [None]
